FAERS Safety Report 9981710 (Version 1)
Quarter: 2014Q1

REPORT INFORMATION
  Report Type: Report from Study
  Country: US (occurrence: US)
  Receive Date: 20140307
  Receipt Date: 20140307
  Transmission Date: 20141002
  Serious: No
  Sender: FDA-Public Use
  Company Number: US-ABBVIE-13P-163-1177386-00

PATIENT
  Age: 29 Year
  Sex: Male

DRUGS (6)
  1. HUMIRA [Suspect]
     Indication: COLITIS ULCERATIVE
     Dates: start: 20131101, end: 20131101
  2. HUMIRA [Suspect]
     Dates: start: 20131115, end: 20131115
  3. HUMIRA [Suspect]
     Dates: start: 20131129
  4. PROTONIX [Concomitant]
     Indication: GASTROOESOPHAGEAL REFLUX DISEASE
  5. APRISO [Concomitant]
     Indication: COLITIS ULCERATIVE
     Dosage: PILLS
  6. PREDNISONE [Concomitant]
     Indication: COLITIS ULCERATIVE

REACTIONS (1)
  - Injection site bruising [Not Recovered/Not Resolved]
